FAERS Safety Report 6763800-9 (Version None)
Quarter: 2010Q2

REPORT INFORMATION
  Report Type: 
  Country: None (occurrence: None)
  Receive Date: 20100610
  Receipt Date: 20100603
  Transmission Date: 20101027
  Serious: Yes (Death)
  Sender: FDA-Public Use
  Company Number: JP-ROCHE-708010

PATIENT
  Sex: Female

DRUGS (7)
  1. ACTEMRA [Suspect]
     Indication: RHEUMATOID ARTHRITIS
     Dosage: ACTION TAKEN: NOT APPLICABLE.
     Route: 041
     Dates: start: 20091210, end: 20100511
  2. AMOBAN [Concomitant]
     Dosage: NOTE: DOSAGE IS UNCERTAIN.
     Route: 048
  3. RHYTHMY [Concomitant]
     Dosage: NOTE: DOSAGE IS UNCERTAIN.
     Route: 048
  4. HALCION [Concomitant]
     Dosage: NOTE: DOSAGE IS UNCERTAIN.
     Route: 048
  5. GOODMIN [Concomitant]
     Dosage: NOTE: DOSAGE IS UNCERTAIN.
     Route: 048
  6. LEVOTOMIN [Concomitant]
     Dosage: DOSE FORM: PERORAL AGENT.  NOTE: DOSAGE IS UNCERTAIN.
     Route: 048
  7. DEPAS [Concomitant]
     Route: 048

REACTIONS (1)
  - CARDIAC FAILURE [None]
